FAERS Safety Report 12216056 (Version 4)
Quarter: 2017Q3

REPORT INFORMATION
  Report Type: Report from Study
  Country: US (occurrence: US)
  Receive Date: 20160329
  Receipt Date: 20170727
  Transmission Date: 20171127
  Serious: Yes (Other)
  Sender: FDA-Public Use
  Company Number: US-ASTRAZENECA-2016SE31898

PATIENT
  Age: 971 Month
  Sex: Male
  Weight: 83.9 kg

DRUGS (11)
  1. CASODEX [Suspect]
     Active Substance: BICALUTAMIDE
     Indication: PROSTATE CANCER
     Route: 048
     Dates: start: 201208
  2. LEUPROLIDE [Concomitant]
     Active Substance: LEUPROLIDE
     Route: 030
  3. LYNPARZA [Suspect]
     Active Substance: OLAPARIB
     Indication: PROSTATE CANCER
     Route: 048
     Dates: start: 20160316
  4. LYNPARZA [Suspect]
     Active Substance: OLAPARIB
     Indication: PROSTATE CANCER
     Route: 048
  5. SODIUM CHLORIDE. [Concomitant]
     Active Substance: SODIUM CHLORIDE
     Indication: NASAL CONGESTION
  6. PRILOSEC [Suspect]
     Active Substance: OMEPRAZOLE MAGNESIUM
     Indication: GASTROOESOPHAGEAL REFLUX DISEASE
     Route: 048
     Dates: start: 201510
  7. POLYETHLENE GLYCOL (MIRALAX) [Concomitant]
  8. SENNOSIDES. [Concomitant]
     Active Substance: SENNOSIDES
     Indication: CONSTIPATION
  9. OXYBUTYNIN [Concomitant]
     Active Substance: OXYBUTYNIN
  10. AMLODIPINE [Concomitant]
     Active Substance: AMLODIPINE BESYLATE
     Indication: BLOOD PRESSURE ABNORMAL
     Route: 048
     Dates: start: 2015
  11. POTASSIUM CHLORIDE. [Concomitant]
     Active Substance: POTASSIUM CHLORIDE

REACTIONS (31)
  - Metastases to lymph nodes [Unknown]
  - Suprapubic pain [Unknown]
  - Oedema peripheral [Unknown]
  - Fatigue [Unknown]
  - Glossodynia [Unknown]
  - Product use in unapproved indication [Unknown]
  - Hydronephrosis [Unknown]
  - Eyelid ptosis [Unknown]
  - Strabismus [Unknown]
  - Back pain [Unknown]
  - Neuropathy peripheral [Unknown]
  - Urinary incontinence [Unknown]
  - Abdominal pain upper [Unknown]
  - Off label use [Unknown]
  - Malignant neoplasm progression [Unknown]
  - Dysuria [Recovering/Resolving]
  - Pain in extremity [Unknown]
  - Tongue disorder [Unknown]
  - Sinusitis [Not Recovered/Not Resolved]
  - Nausea [Unknown]
  - Decreased appetite [Unknown]
  - Spinal column stenosis [Unknown]
  - Nail discolouration [Unknown]
  - Depressed mood [Unknown]
  - Haemorrhage urinary tract [Unknown]
  - Neuroendocrine carcinoma [Unknown]
  - Haematuria [Unknown]
  - Constipation [Unknown]
  - Hot flush [Unknown]
  - Insomnia [Unknown]
  - Dysgeusia [Unknown]

NARRATIVE: CASE EVENT DATE: 201603
